FAERS Safety Report 8217944-5 (Version None)
Quarter: 2012Q1

REPORT INFORMATION
  Report Type: 
  Country: None (occurrence: None)
  Receive Date: 20120319
  Receipt Date: 20120307
  Transmission Date: 20120608
  Serious: No
  Sender: FDA-Public Use
  Company Number: US-BAYER-2012-023960

PATIENT
  Age: 85 Year
  Sex: Female
  Weight: 58 kg

DRUGS (9)
  1. DIOVAN [Concomitant]
  2. ALEVE (CAPLET) [Suspect]
     Indication: PAIN
     Dosage: 1 DF, QD
     Route: 048
     Dates: start: 20120201, end: 20120307
  3. FUROSEMIDE [Concomitant]
  4. EVISTA [Concomitant]
  5. ARICEPT [Concomitant]
  6. ASTEPRO [Concomitant]
  7. CARVEDILOL [Concomitant]
  8. LEXAPRO [Concomitant]
  9. CITRACAL REGULAR [Concomitant]

REACTIONS (1)
  - DIARRHOEA [None]
